FAERS Safety Report 7376565-7 (Version None)
Quarter: 2011Q1

REPORT INFORMATION
  Report Type: 
  Country: None (occurrence: None)
  Receive Date: 20110325
  Receipt Date: 20110317
  Transmission Date: 20110831
  Serious: No
  Sender: FDA-Public Use
  Company Number: US-GILEAD-2010-0033965

PATIENT
  Age: 38 Week
  Sex: Female
  Weight: 2.776 kg

DRUGS (4)
  1. RETROVIR [Concomitant]
     Indication: HIV INFECTION
     Route: 011
     Dates: start: 20110309, end: 20110309
  2. REYATAZ [Concomitant]
     Indication: HIV INFECTION
     Route: 048
     Dates: start: 20100917
  3. TRUVADA [Suspect]
     Indication: HIV INFECTION
     Route: 048
     Dates: start: 20100917
  4. NORVIR [Concomitant]
     Indication: HIV INFECTION
     Route: 048
     Dates: start: 20100917

REACTIONS (1)
  - ULTRASOUND ANTENATAL SCREEN ABNORMAL [None]
